FAERS Safety Report 11808372 (Version 1)
Quarter: 2015Q4

REPORT INFORMATION
  Report Type: Spontaneous
  Country: US (occurrence: US)
  Receive Date: 20151207
  Receipt Date: 20151207
  Transmission Date: 20160305
  Serious: No
  Sender: FDA-Public Use
  Company Number: US-ROCHE-1591829

PATIENT
  Sex: Female

DRUGS (6)
  1. LYRICA [Suspect]
     Active Substance: PREGABALIN
     Indication: NERVE INJURY
  2. LYRICA [Suspect]
     Active Substance: PREGABALIN
     Indication: FIBROMYALGIA
     Route: 065
  3. LYRICA [Suspect]
     Active Substance: PREGABALIN
     Indication: DYSTONIA
  4. VALIUM [Suspect]
     Active Substance: DIAZEPAM
     Indication: PAIN
     Route: 065
  5. LYRICA [Suspect]
     Active Substance: PREGABALIN
     Indication: NEUROPATHY PERIPHERAL
  6. VICODIN [Suspect]
     Active Substance: ACETAMINOPHEN\HYDROCODONE BITARTRATE
     Indication: PAIN
     Route: 065

REACTIONS (15)
  - Suicidal ideation [Unknown]
  - Heart rate increased [Unknown]
  - Back injury [Unknown]
  - Drug withdrawal syndrome [Unknown]
  - Movement disorder [Unknown]
  - Asthenia [Unknown]
  - Depressed mood [Unknown]
  - Myalgia [Unknown]
  - Emotional distress [Unknown]
  - Intentional product use issue [Unknown]
  - Generalised tonic-clonic seizure [Unknown]
  - Cognitive disorder [Unknown]
  - Pain [Unknown]
  - Headache [Unknown]
  - Drug ineffective [Unknown]
